FAERS Safety Report 9690430 (Version 2)
Quarter: 2013Q4

REPORT INFORMATION
  Report Type: Report from Study
  Country: JP (occurrence: JP)
  Receive Date: 20131115
  Receipt Date: 20131204
  Transmission Date: 20140711
  Serious: Yes (Death, Other)
  Sender: FDA-Public Use
  Company Number: JP-UCBSA-102974

PATIENT
  Age: 63 Year
  Sex: Male
  Weight: 65 kg

DRUGS (4)
  1. E KEPPRA [Suspect]
     Indication: PARTIAL SEIZURES WITH SECONDARY GENERALISATION
     Route: 048
     Dates: start: 20130703, end: 20130821
  2. E KEPPRA [Suspect]
     Indication: SIMPLE PARTIAL SEIZURES
     Route: 048
     Dates: start: 20130703, end: 20130821
  3. E KEPPRA [Suspect]
     Indication: COMPLEX PARTIAL SEIZURES
     Route: 048
     Dates: start: 20130703, end: 20130821
  4. TEGRETOL [Concomitant]
     Dosage: 600 MG DAILY
     Route: 048
     Dates: start: 20130705, end: 20130821

REACTIONS (1)
  - Colon cancer [Fatal]
